FAERS Safety Report 6712674-0 (Version None)
Quarter: 2010Q2

REPORT INFORMATION
  Report Type: 
  Country: None (occurrence: None)
  Receive Date: 20100505
  Receipt Date: 20100505
  Transmission Date: 20101027
  Serious: Yes (Life-Threatening)
  Sender: FDA-Public Use
  Company Number: None

PATIENT
  Age: 30 Year
  Sex: Female
  Weight: 87.09 kg

DRUGS (1)
  1. STADOL [Suspect]

REACTIONS (4)
  - FLUSHING [None]
  - HEADACHE [None]
  - OXYGEN SATURATION DECREASED [None]
  - RASH [None]
